FAERS Safety Report 8415761-4 (Version None)
Quarter: 2012Q2

REPORT INFORMATION
  Report Type: 
  Country: None (occurrence: None)
  Receive Date: 20120606
  Receipt Date: 20120530
  Transmission Date: 20120825
  Serious: Yes (Hospitalization)
  Sender: FDA-Public Use
  Company Number: US-ASTELLAS-2012US004120

PATIENT
  Sex: Male

DRUGS (1)
  1. ERLOTINIB HYDROCHLORIDE [Suspect]
     Indication: PANCREATIC CARCINOMA
     Dosage: 100 MG, UID/QD
     Route: 048
     Dates: start: 20120402

REACTIONS (8)
  - CHOLECYSTECTOMY [None]
  - RASH [None]
  - NAUSEA [None]
  - CHAPPED LIPS [None]
  - FATIGUE [None]
  - DIARRHOEA [None]
  - OEDEMA PERIPHERAL [None]
  - PANCREATECTOMY [None]
